FAERS Safety Report 10072654 (Version 3)
Quarter: 2014Q2

REPORT INFORMATION
  Report Type: Spontaneous
  Country: US (occurrence: US)
  Receive Date: 20140411
  Receipt Date: 20140424
  Transmission Date: 20141212
  Serious: No
  Sender: FDA-Public Use
  Company Number: US-PFIZER INC-2014097765

PATIENT
  Age: 58 Year
  Sex: Female

DRUGS (5)
  1. DETROL [Suspect]
     Dosage: 2 MG, DAILY (TAKE 1 TABLET DAILY)
     Route: 048
  2. DETROL LA [Suspect]
     Dosage: 2 MG, UNK
  3. CELEBREX [Concomitant]
     Dosage: 100 MG, DAILY
     Route: 048
  4. TRUVADA [Concomitant]
     Dosage: UNK
  5. TIVICAY [Concomitant]
     Dosage: UNK

REACTIONS (1)
  - Drug dispensing error [Unknown]
